FAERS Safety Report 7948855-8 (Version None)
Quarter: 2011Q4

REPORT INFORMATION
  Report Type: 
  Country: None (occurrence: None)
  Receive Date: 20111130
  Receipt Date: 20111121
  Transmission Date: 20120403
  Serious: No
  Sender: FDA-Public Use
  Company Number: PHHY2011TH103448

PATIENT
  Sex: Female
  Weight: 52 kg

DRUGS (3)
  1. TASIGNA [Suspect]
     Indication: CHRONIC MYELOID LEUKAEMIA
     Dosage: 200 MG, QID
     Route: 048
  2. ONSIA [Concomitant]
     Indication: NAUSEA
  3. ONSIA [Concomitant]
     Indication: VOMITING

REACTIONS (4)
  - HAIR TEXTURE ABNORMAL [None]
  - PAIN [None]
  - RASH [None]
  - PRURITUS [None]
